FAERS Safety Report 8370142-7 (Version None)
Quarter: 2012Q2

REPORT INFORMATION
  Report Type: 
  Country: None (occurrence: None)
  Receive Date: 20120518
  Receipt Date: 20120515
  Transmission Date: 20120825
  Serious: No
  Sender: FDA-Public Use
  Company Number: US-TEVA-338423USA

PATIENT
  Sex: Female
  Weight: 139.38 kg

DRUGS (4)
  1. WELLBUTRIN [Concomitant]
     Indication: DEPRESSION
  2. PLAN B ONE-STEP [Suspect]
     Dosage: 1.5 MILLIGRAM;
     Route: 048
     Dates: start: 20120512, end: 20120512
  3. PLAN B ONE-STEP [Suspect]
     Indication: POST COITAL CONTRACEPTION
     Dosage: 1.5 MILLIGRAM;
     Route: 048
     Dates: start: 20120506, end: 20120506
  4. AMPHETAMINES [Concomitant]
     Indication: OVERWEIGHT

REACTIONS (1)
  - ABDOMINAL PAIN LOWER [None]
